FAERS Safety Report 7333168-8 (Version None)
Quarter: 2011Q1

REPORT INFORMATION
  Report Type: 
  Country: None (occurrence: None)
  Receive Date: 20110304
  Receipt Date: 20110222
  Transmission Date: 20110831
  Serious: No
  Sender: FDA-Public Use
  Company Number: US-B.I. PHARMACEUTICALS,INC./RIDGEFIELD-2011-BP-06147BP

PATIENT
  Age: 67 Year
  Sex: Female

DRUGS (5)
  1. SYNTHROID [Concomitant]
     Indication: THYROID DISORDER
     Dosage: 0.25 MCG
  2. DIOVAN [Concomitant]
     Indication: CARDIAC DISORDER
     Dosage: 320 MG
  3. PRADAXA [Suspect]
     Indication: ATRIAL FIBRILLATION
     Dosage: 300 MG
     Route: 048
     Dates: start: 20101201
  4. MULTIPLE SUPPLEMENTS [Concomitant]
     Indication: GASTRIC BYPASS
  5. LOPRESSOR [Concomitant]
     Indication: CARDIAC DISORDER
     Dosage: 200 MG

REACTIONS (1)
  - HYPERTENSION [None]
